FAERS Safety Report 10431260 (Version 1)
Quarter: 2014Q3

REPORT INFORMATION
  Report Type: Spontaneous
  Country: US (occurrence: None)
  Receive Date: 20140903
  Receipt Date: 20140903
  Transmission Date: 20150326
  Serious: Yes (Hospitalization)
  Sender: FDA-Public Use
  Company Number: 001794139A

PATIENT
  Age: 39 Year
  Sex: Female

DRUGS (2)
  1. X OUT CLEANSING BODY BAR [Suspect]
     Active Substance: SALICYLIC ACID
     Indication: ACNE
     Dosage: DERMAL
     Dates: start: 20140801, end: 20140807
  2. X OUT SPOT CORRECTOR [Suspect]
     Active Substance: SULFUR
     Indication: ACNE
     Dosage: DERMAL
     Dates: start: 20140801, end: 20140807

REACTIONS (6)
  - Application site pruritus [None]
  - Application site swelling [None]
  - Blood pressure increased [None]
  - Application site pain [None]
  - Application site erythema [None]
  - Application site urticaria [None]

NARRATIVE: CASE EVENT DATE: 20140808
